FAERS Safety Report 11940453 (Version 1)
Quarter: 2016Q1

REPORT INFORMATION
  Report Type: Spontaneous
  Country: US (occurrence: US)
  Receive Date: 20160122
  Receipt Date: 20160122
  Transmission Date: 20160526
  Serious: No
  Sender: FDA-Public Use
  Company Number: US-DYAX CORP.-2015DX000380

PATIENT
  Age: 53 Year
  Sex: Female
  Weight: 68.1 kg

DRUGS (3)
  1. KALBITOR [Suspect]
     Active Substance: ECALLANTIDE
     Indication: HEREDITARY ANGIOEDEMA
     Route: 065
     Dates: start: 20150812, end: 20150812
  2. PAXIL [Concomitant]
     Active Substance: PAROXETINE HYDROCHLORIDE
     Indication: PRODUCT USED FOR UNKNOWN INDICATION
     Route: 048
  3. KALBITOR [Suspect]
     Active Substance: ECALLANTIDE
     Route: 065
     Dates: start: 2014

REACTIONS (3)
  - Ankle fracture [Recovering/Resolving]
  - Drug administration error [Recovered/Resolved]
  - Pain in extremity [Recovering/Resolving]

NARRATIVE: CASE EVENT DATE: 201507
